FAERS Safety Report 7731533-8 (Version None)
Quarter: 2011Q3

REPORT INFORMATION
  Report Type: 
  Country: None (occurrence: None)
  Receive Date: 20110906
  Receipt Date: 20110613
  Transmission Date: 20111222
  Serious: No
  Sender: FDA-Public Use
  Company Number: US-AMGEN-USASP2011030170

PATIENT
  Age: 72 Year
  Sex: Female

DRUGS (5)
  1. PROLIA [Suspect]
     Indication: OSTEOPOROSIS POSTMENOPAUSAL
     Dosage: 60 MG, Q6MO
     Dates: start: 20110606
  2. VITAMIN D [Concomitant]
     Dates: start: 20110601
  3. SIMVASTATIN [Concomitant]
  4. CALCIUM CARBONATE [Concomitant]
  5. METFORMIN HCL [Concomitant]

REACTIONS (2)
  - HEADACHE [None]
  - STRESS [None]
